FAERS Safety Report 11530036 (Version 1)
Quarter: 2015Q3

REPORT INFORMATION
  Report Type: Spontaneous
  Country: US (occurrence: US)
  Receive Date: 20150921
  Receipt Date: 20150921
  Transmission Date: 20151125
  Serious: Yes (Hospitalization)
  Sender: FDA-Public Use
  Company Number: US-PFIZER INC-2015236707

PATIENT
  Age: 87 Year
  Sex: Male
  Weight: 114.74 kg

DRUGS (1)
  1. SUTENT [Suspect]
     Active Substance: SUNITINIB MALATE
     Indication: RENAL CANCER METASTATIC
     Dosage: 12.5 MG, CYCLIC (DAILY FOR 4 WEEKS THEN 2 WEEKS OFF)
     Route: 048
     Dates: start: 20150727, end: 20150815

REACTIONS (6)
  - Cardiac failure congestive [Not Recovered/Not Resolved]
  - Disease progression [Unknown]
  - Renal cancer metastatic [Unknown]
  - Atrial fibrillation [Not Recovered/Not Resolved]
  - Fluid retention [Not Recovered/Not Resolved]
  - General physical health deterioration [Not Recovered/Not Resolved]

NARRATIVE: CASE EVENT DATE: 2015
